FAERS Safety Report 12896676 (Version 1)
Quarter: 2016Q4

REPORT INFORMATION
  Report Type: Spontaneous
  Country: US (occurrence: US)
  Receive Date: 20161031
  Receipt Date: 20161031
  Transmission Date: 20170207
  Serious: No
  Sender: FDA-Public Use
  Company Number: US-GLAXOSMITHKLINE-US2016159358

PATIENT
  Sex: Female

DRUGS (5)
  1. BUPROPION HYDROCHLORIDE. [Suspect]
     Active Substance: BUPROPION HYDROCHLORIDE
     Indication: FATIGUE
     Dosage: 75 MG, QD
     Route: 048
     Dates: start: 1997
  2. MILK THISTLE [Concomitant]
     Active Substance: MILK THISTLE
  3. WELLBUTRIN SR [Suspect]
     Active Substance: BUPROPION HYDROCHLORIDE
     Indication: FATIGUE
     Dosage: 100 MG, QD
     Route: 048
     Dates: start: 201604
  4. PAXIL [Suspect]
     Active Substance: PAROXETINE HYDROCHLORIDE
     Indication: PRODUCT USED FOR UNKNOWN INDICATION
  5. SPIROLACTONE [Concomitant]
     Active Substance: SPIRONOLACTONE

REACTIONS (6)
  - Feeling abnormal [Not Recovered/Not Resolved]
  - Withdrawal syndrome [Unknown]
  - Anger [Unknown]
  - Vertigo [Recovered/Resolved]
  - Wrong technique in product usage process [Not Recovered/Not Resolved]
  - Intentional product misuse [Unknown]

NARRATIVE: CASE EVENT DATE: 1997
